FAERS Safety Report 14710329 (Version 1)
Quarter: 2018Q2

REPORT INFORMATION
  Report Type: Spontaneous
  Country: US (occurrence: US)
  Receive Date: 20180403
  Receipt Date: 20180403
  Transmission Date: 20180711
  Serious: No
  Sender: FDA-Public Use
  Company Number: US-ROCHE-1961967

PATIENT
  Age: 73 Year
  Sex: Female

DRUGS (4)
  1. VISMODEGIB. [Suspect]
     Active Substance: VISMODEGIB
     Dosage: DOSING INTERVAL OF 4 WEEKS
     Route: 065
  2. VISMODEGIB. [Suspect]
     Active Substance: VISMODEGIB
     Dosage: DOSING INTERVAL OF 6 WEEKS
     Route: 065
  3. VISMODEGIB. [Suspect]
     Active Substance: VISMODEGIB
     Dosage: DOSING INTERVAL OF 4 WEEKS OFF
     Route: 065
  4. VISMODEGIB. [Suspect]
     Active Substance: VISMODEGIB
     Indication: BASAL CELL CARCINOMA
     Dosage: 2 MONTHS ON 2 MONTHS OFF THE MEDICATION
     Route: 065

REACTIONS (4)
  - Weight decreased [Not Recovered/Not Resolved]
  - Alopecia [Not Recovered/Not Resolved]
  - Dysgeusia [Not Recovered/Not Resolved]
  - Decreased appetite [Not Recovered/Not Resolved]
